FAERS Safety Report 4276261-9 (Version None)
Quarter: 2004Q1

REPORT INFORMATION
  Report Type: 
  Country: None (occurrence: None)
  Receive Date: 20040121
  Receipt Date: 20011024
  Transmission Date: 20041129
  Serious: Yes (Life-Threatening, Hospitalization)
  Sender: FDA-Public Use
  Company Number: ES-ROCHE-300405

PATIENT
  Age: 68 Year
  Sex: Female
  Weight: 55.1 kg

DRUGS (18)
  1. DACLIZUMAB [Suspect]
     Route: 042
     Dates: start: 20011023, end: 20011023
  2. DACLIZUMAB [Suspect]
     Dosage: FOR FOUR DOSES AS PER PROTOCOL.
     Route: 042
     Dates: start: 20011106, end: 20011205
  3. MYCOPHENOLATE MOFETIL [Suspect]
     Route: 048
     Dates: start: 20011023
  4. NEORAL [Concomitant]
     Dosage: REDUCED TO 100 MG ON 16 NOV 2001.
     Dates: start: 20011023, end: 20011126
  5. SOLU MODERIN [Concomitant]
     Dates: start: 20011023, end: 20011023
  6. AZTREONAM [Concomitant]
     Dates: start: 20011023, end: 20011025
  7. AUGMENTIN '125' [Concomitant]
     Dates: start: 20011023, end: 20011024
  8. FENTANIL [Concomitant]
     Dates: start: 20011023, end: 20011023
  9. LIDOCAINE [Concomitant]
     Dates: start: 20011023, end: 20011023
  10. PROPOFOL [Concomitant]
  11. ATROPINA [Concomitant]
     Indication: SOMNOLENCE
     Dates: start: 20011023, end: 20011023
  12. NEOSTIGMINE [Concomitant]
     Indication: SOMNOLENCE
     Dates: start: 20011023, end: 20011023
  13. NALOXONA [Concomitant]
     Indication: SOMNOLENCE
     Dates: start: 20011023, end: 20011023
  14. VECURONIUM [Concomitant]
     Dates: start: 20011023, end: 20011023
  15. PREDNISONE [Concomitant]
     Dates: start: 20011103, end: 20011210
  16. OMEPRAZOL [Concomitant]
     Dates: start: 20011101, end: 20011125
  17. CALCIUM HYDROGEN PHOSPHATE [Concomitant]
     Dates: start: 20011108
  18. FUROSEMIDE [Concomitant]
     Dates: start: 20011108

REACTIONS (7)
  - ABDOMINAL PAIN [None]
  - CARDIO-RESPIRATORY ARREST [None]
  - CYTOMEGALOVIRUS INFECTION [None]
  - DIARRHOEA [None]
  - HYPOXIA [None]
  - RESPIRATORY FAILURE [None]
  - RETROPERITONEAL HAEMATOMA [None]
